FAERS Safety Report 25668573 (Version 3)
Quarter: 2025Q4

REPORT INFORMATION
  Report Type: Report from Study
  Country: US (occurrence: US)
  Receive Date: 20250812
  Receipt Date: 20251030
  Transmission Date: 20260118
  Serious: Yes (Other)
  Sender: SYNDAX
  Company Number: US-SYNDAX PHARMACEUTICALS, INC.-2025US000601

PATIENT
  Sex: Female
  Weight: 47.937 kg

DRUGS (4)
  1. REVUFORJ [Suspect]
     Active Substance: REVUMENIB CITRATE
     Indication: Product used for unknown indication
     Dosage: 160 MILLIGRAM, DAILY
     Route: 048
  2. REVUFORJ [Suspect]
     Active Substance: REVUMENIB CITRATE
     Dosage: 110 MILLIGRAM, DAILY
     Route: 048
  3. REVUFORJ [Suspect]
     Active Substance: REVUMENIB CITRATE
     Dosage: 110 MILLIGRAM, BID
     Route: 048
     Dates: end: 20250806
  4. REVUFORJ [Suspect]
     Active Substance: REVUMENIB CITRATE
     Dosage: 50 MILLIGRAM, BID
     Route: 048

REACTIONS (2)
  - Graft versus host disease [Unknown]
  - Infection [Unknown]
